FAERS Safety Report 5940427-X (Version None)
Quarter: 2008Q4

REPORT INFORMATION
  Report Type: 
  Country: None (occurrence: None)
  Receive Date: 20081104
  Receipt Date: 20081024
  Transmission Date: 20090506
  Serious: Yes (Other)
  Sender: FDA-Public Use
  Company Number: FR-JNJFOC-20081001810

PATIENT
  Age: 22 Year
  Sex: Female
  Weight: 49 kg

DRUGS (4)
  1. REMICADE [Suspect]
     Route: 042
  2. REMICADE [Suspect]
     Route: 042
  3. REMICADE [Suspect]
     Indication: CROHN'S DISEASE
     Route: 042
  4. TARDYFERON [Concomitant]
     Indication: ANAEMIA
     Route: 048

REACTIONS (2)
  - LUPUS-LIKE SYNDROME [None]
  - POLYARTHRITIS [None]
